FAERS Safety Report 7652662-3 (Version None)
Quarter: 2011Q3

REPORT INFORMATION
  Report Type: 
  Country: None (occurrence: None)
  Receive Date: 20110803
  Receipt Date: 20110721
  Transmission Date: 20111222
  Serious: Yes (Death, Hospitalization, Other)
  Sender: FDA-Public Use
  Company Number: CA-ELI_LILLY_AND_COMPANY-CA201101005662

PATIENT
  Age: 35 Year
  Sex: Male

DRUGS (1)
  1. PROZAC [Suspect]
     Indication: DEPRESSION

REACTIONS (4)
  - DEPRESSION SUICIDAL [None]
  - SUICIDE ATTEMPT [None]
  - MENTAL DISORDER [None]
  - COMPLETED SUICIDE [None]
